FAERS Safety Report 17307794 (Version 1)
Quarter: 2020Q1

REPORT INFORMATION
  Report Type: Spontaneous
  Country: FR (occurrence: FR)
  Receive Date: 20200123
  Receipt Date: 20200123
  Transmission Date: 20200409
  Serious: Yes (Other)
  Sender: FDA-Public Use
  Company Number: FR-ASTRAZENECA-2020SE07832

PATIENT
  Age: 68 Year
  Sex: Male

DRUGS (1)
  1. IMFINZI [Suspect]
     Active Substance: DURVALUMAB
     Indication: LUNG ADENOCARCINOMA
     Route: 042
     Dates: start: 20190912

REACTIONS (4)
  - Burning sensation [Recovered/Resolved]
  - Hyperthyroidism [Not Recovered/Not Resolved]
  - Rash [Not Recovered/Not Resolved]
  - Sjogren^s syndrome [Not Recovered/Not Resolved]

NARRATIVE: CASE EVENT DATE: 201910
